FAERS Safety Report 22100211 (Version 1)
Quarter: 2023Q1

REPORT INFORMATION
  Report Type: Spontaneous
  Country: CN (occurrence: CN)
  Receive Date: 20230315
  Receipt Date: 20230315
  Transmission Date: 20230418
  Serious: Yes (Hospitalization)
  Sender: FDA-Public Use
  Company Number: CN-009507513-2303CHN003355

PATIENT
  Sex: Female
  Weight: 46 kg

DRUGS (2)
  1. INVANZ [Suspect]
     Active Substance: ERTAPENEM SODIUM
     Indication: Urinary tract infection
     Dosage: 1 G, QD
     Route: 041
     Dates: start: 20230224, end: 20230227
  2. SODIUM CHLORIDE [Concomitant]
     Active Substance: SODIUM CHLORIDE
     Indication: Medication dilution
     Dosage: 100 ML, QD
     Route: 041
     Dates: start: 20230224, end: 20230227

REACTIONS (3)
  - Mental disorder [Recovering/Resolving]
  - Restlessness [Recovering/Resolving]
  - Disorganised speech [Recovering/Resolving]

NARRATIVE: CASE EVENT DATE: 20230227
